FAERS Safety Report 5270229-1 (Version None)
Quarter: 2007Q1

REPORT INFORMATION
  Report Type: 
  Country: None (occurrence: None)
  Receive Date: 20070320
  Receipt Date: 20060330
  Transmission Date: 20070707
  Serious: Yes (Hospitalization)
  Sender: FDA-Public Use
  Company Number: FR-PFIZER INC-2007019090

PATIENT
  Age: 13 Month
  Sex: Male

DRUGS (3)
  1. CEFPODOXIME PROXETIL TABLET [Suspect]
     Dosage: TEXT:400 MG
     Route: 048
     Dates: start: 20060329, end: 20060329
  2. BRONCHORECTINE AU CITRAL [Concomitant]
  3. DOLIPRANE [Concomitant]

REACTIONS (3)
  - NO ADVERSE EFFECT [None]
  - OVERDOSE [None]
  - WRONG TECHNIQUE IN DRUG USAGE PROCESS [None]
